FAERS Safety Report 17806328 (Version 1)
Quarter: 2020Q2

REPORT INFORMATION
  Report Type: Spontaneous
  Country: DE (occurrence: DE)
  Receive Date: 20200520
  Receipt Date: 20200520
  Transmission Date: 20200714
  Serious: Yes (Life-Threatening, Hospitalization)
  Sender: FDA-Public Use
  Company Number: DE-TEVA-2020-DE-1236343

PATIENT
  Age: 88 Year
  Sex: Male

DRUGS (9)
  1. PARACETAMOL [Concomitant]
     Active Substance: ACETAMINOPHEN
     Dosage: 500 MG, IF NECESSARY
  2. BRINZOLAMID [Concomitant]
     Dosage: 2 DOSAGE FORMS DAILY; NK MG, 1-0-1-0, DROPS
  3. LEVOMEPROMAZIN [Suspect]
     Active Substance: LEVOMEPROMAZINE
     Dosage: 40 MG, IF NECESSARY, DROPS
  4. RISPERIDON [Suspect]
     Active Substance: RISPERIDONE
     Dosage: .5 MILLIGRAM DAILY;  0-0-0-1
  5. METOPROLOL. [Concomitant]
     Active Substance: METOPROLOL
     Dosage: 47.5 MILLIGRAM DAILY;  1-0-1-0
  6. MACROGOL [Concomitant]
     Active Substance: POLYETHYLENE GLYCOLS
     Dosage: NK MG, IF NECESSARY
  7. RIVAROXABAN [Concomitant]
     Active Substance: RIVAROXABAN
     Dosage: 15 MG, 1-0-0-0
  8. DEXPANTHENOL ACIS WUND- UND HEILCREME [Concomitant]
     Dosage: 2 DOSAGE FORMS DAILY; 50 MG, 1-0-1-0
  9. CALCIUM [Concomitant]
     Active Substance: CALCIUM
     Dosage: 500 MILLIGRAM DAILY;  1-0-0-0

REACTIONS (1)
  - Fall [Unknown]

NARRATIVE: CASE EVENT DATE: 20200112
